FAERS Safety Report 22165169 (Version 1)
Quarter: 2023Q2

REPORT INFORMATION
  Report Type: Spontaneous
  Country: US (occurrence: US)
  Receive Date: 20230403
  Receipt Date: 20230403
  Transmission Date: 20230722
  Serious: No
  Sender: FDA-Public Use
  Company Number: US-BRISTOL-MYERS SQUIBB COMPANY-2023-042828

PATIENT
  Age: 62 Year
  Sex: Female

DRUGS (1)
  1. REVLIMID [Suspect]
     Active Substance: LENALIDOMIDE
     Indication: Plasma cell myeloma
     Dosage: FREQUENCY: DAILY FOR 21 DAYS, THEN TAKE 7
     Route: 048

REACTIONS (7)
  - Pain [Unknown]
  - Back pain [Unknown]
  - Fatigue [Unknown]
  - Brain fog [Unknown]
  - Nasopharyngitis [Unknown]
  - Cough [Unknown]
  - Memory impairment [Unknown]

NARRATIVE: CASE EVENT DATE: 20230322
